FAERS Safety Report 20701572 (Version 1)
Quarter: 2022Q2

REPORT INFORMATION
  Report Type: Spontaneous
  Country: US (occurrence: None)
  Receive Date: 20220412
  Receipt Date: 20220412
  Transmission Date: 20220721
  Serious: No
  Sender: FDA-Public Use
  Company Number: None

PATIENT
  Age: 73 Year
  Sex: Male
  Weight: 83.91 kg

DRUGS (2)
  1. ODOMZO [Suspect]
     Active Substance: SONIDEGIB
     Indication: Basal cell carcinoma
     Dosage: TAKE 1 CAPSULE BY MOUTH DAILY ON EMPTY SOTAMCH, AT LEAST 1 HOUR BEFOR OR 2 HOURS AFTER A MEAL AS?
     Route: 048
     Dates: start: 202108
  2. ODOMZO [Suspect]
     Active Substance: SONIDEGIB
     Indication: Squamous cell carcinoma of skin

REACTIONS (2)
  - COVID-19 [None]
  - Therapy interrupted [None]
